FAERS Safety Report 4423925-X (Version None)
Quarter: 2004Q3

REPORT INFORMATION
  Report Type: 
  Country: None (occurrence: None)
  Receive Date: 20040805
  Receipt Date: 20040729
  Transmission Date: 20050211
  Serious: Yes (Death)
  Sender: FDA-Public Use
  Company Number: 2004215843NO

PATIENT
  Age: 90 Year
  Sex: Male

DRUGS (2)
  1. ZYVOXID (LINEZOLID) SOLUTION, STERILE [Suspect]
  2. VANCOMYCIN [Concomitant]

REACTIONS (1)
  - CEREBROVASCULAR ACCIDENT [None]
